FAERS Safety Report 10381533 (Version 1)
Quarter: 2014Q3

REPORT INFORMATION
  Report Type: Spontaneous
  Country: US (occurrence: US)
  Receive Date: 20140813
  Receipt Date: 20140813
  Transmission Date: 20150326
  Serious: Yes (Other)
  Sender: FDA-Public Use
  Company Number: US-MYLANLABS-2014M1000469

PATIENT

DRUGS (1)
  1. EPIPEN [Suspect]
     Active Substance: EPINEPHRINE
     Dosage: 0.3 MG, ONCE
     Route: 030
     Dates: start: 20140725, end: 20140725

REACTIONS (4)
  - Vasoconstriction [Recovered/Resolved]
  - Hypokalaemia [Not Recovered/Not Resolved]
  - Blood pressure increased [Recovered/Resolved]
  - Therapeutic response changed [Recovered/Resolved]

NARRATIVE: CASE EVENT DATE: 20140725
